FAERS Safety Report 4347463-8 (Version None)
Quarter: 2004Q2

REPORT INFORMATION
  Report Type: 
  Country: None (occurrence: None)
  Receive Date: 20040426
  Receipt Date: 20040426
  Transmission Date: 20050107
  Serious: No
  Sender: FDA-Public Use
  Company Number: None

PATIENT
  Age: 50 Year
  Sex: Male
  Weight: 81.6475 kg

DRUGS (2)
  1. ZOLOFT [Suspect]
     Indication: DEPRESSION
     Dosage: 2 A DAY
  2. WELLBUTRIN SR [Suspect]
     Indication: DEPRESSION
     Dosage: 3 ADAY

REACTIONS (2)
  - AGGRESSION [None]
  - DYSKINESIA [None]
